FAERS Safety Report 7570555-7 (Version None)
Quarter: 2011Q2

REPORT INFORMATION
  Report Type: 
  Country: None (occurrence: None)
  Receive Date: 20110620
  Receipt Date: 20110607
  Transmission Date: 20111010
  Serious: Yes (Hospitalization)
  Sender: FDA-Public Use
  Company Number: DSA_46922_2011

PATIENT
  Age: 86 Year
  Sex: Female

DRUGS (3)
  1. MIRTAZAPINE [Concomitant]
  2. WELLBUTRIN [Suspect]
     Indication: DEPRESSION
     Dosage: 150 MG, QD, ORAL
     Route: 048
     Dates: start: 20110101
  3. PAXIL [Concomitant]

REACTIONS (3)
  - PSYCHOTIC DISORDER [None]
  - FALL [None]
  - INJURY [None]
